FAERS Safety Report 8616349-2 (Version None)
Quarter: 2012Q3

REPORT INFORMATION
  Report Type: 
  Country: None (occurrence: None)
  Receive Date: 20120815
  Receipt Date: 20120815
  Transmission Date: 20120928
  Serious: Yes (Life-Threatening, Other)
  Sender: FDA-Public Use
  Company Number: None

PATIENT
  Age: 55 Year
  Sex: Female
  Weight: 90.2658 kg

DRUGS (1)
  1. ONFI [Suspect]
     Indication: EPILEPSY
     Dosage: 5 MG. 1 PER DAY PO
     Route: 048
     Dates: start: 20120720, end: 20120801

REACTIONS (2)
  - NO THERAPEUTIC RESPONSE [None]
  - RASH PRURITIC [None]
